FAERS Safety Report 10881251 (Version 1)
Quarter: 2015Q1

REPORT INFORMATION
  Report Type: Spontaneous
  Country: US (occurrence: US)
  Receive Date: 20150303
  Receipt Date: 20150303
  Transmission Date: 20150721
  Serious: No
  Sender: FDA-Public Use
  Company Number: US-PFIZER INC-2015073936

PATIENT
  Age: 30 Year
  Sex: Male
  Weight: 84 kg

DRUGS (1)
  1. VIAGRA [Suspect]
     Active Substance: SILDENAFIL CITRATE
     Dosage: 5 MG, DAILY
     Dates: start: 201502

REACTIONS (1)
  - Spontaneous penile erection [Not Recovered/Not Resolved]

NARRATIVE: CASE EVENT DATE: 20150222
